FAERS Safety Report 12995740 (Version 3)
Quarter: 2017Q1

REPORT INFORMATION
  Report Type: Spontaneous
  Country: DK (occurrence: DK)
  Receive Date: 20161202
  Receipt Date: 20170120
  Transmission Date: 20170428
  Serious: Yes (Death, Hospitalization)
  Sender: FDA-Public Use
  Company Number: DK-TEVA-714877ACC

PATIENT
  Age: 69 Year
  Sex: Female
  Weight: 30 kg

DRUGS (2)
  1. RAMIPRIL ^ACTAVIS^ [Suspect]
     Active Substance: RAMIPRIL
     Indication: HYPERTENSION
     Dosage: 5 MILLIGRAM DAILY; STRENGTH: 2.5 MG
     Route: 048
     Dates: start: 20150901, end: 20161115
  2. MORFIN ^DAK^ [Concomitant]
     Indication: PAIN
     Dosage: DOSE: IF NECESSARY. STRENGTH: 10 MG
     Route: 048

REACTIONS (2)
  - Ileus paralytic [Fatal]
  - Hypotension [Fatal]

NARRATIVE: CASE EVENT DATE: 20161115
